FAERS Safety Report 9705829 (Version 2)
Quarter: 2013Q4

REPORT INFORMATION
  Report Type: Spontaneous
  Country: US (occurrence: US)
  Receive Date: 20131122
  Receipt Date: 20131122
  Transmission Date: 20140711
  Serious: No
  Sender: FDA-Public Use
  Company Number: US-GILEAD-2008-0017925

PATIENT
  Sex: Female
  Weight: 76.2 kg

DRUGS (9)
  1. LETAIRIS [Suspect]
     Indication: PULMONARY ARTERIAL HYPERTENSION
     Route: 048
     Dates: start: 20080729
  2. LOVASTATIN [Concomitant]
     Route: 048
  3. COZAAR [Concomitant]
     Route: 048
  4. CLONIDINE HCL [Concomitant]
     Route: 048
  5. LOW DOSE ASPIRIN [Concomitant]
     Route: 048
  6. LASIX [Concomitant]
     Route: 048
  7. MELOXICAM [Concomitant]
     Route: 048
  8. METFORMIN HCL [Concomitant]
     Route: 048
  9. POTASSIUM CHLORIDE [Concomitant]
     Route: 048

REACTIONS (3)
  - Blood glucose increased [None]
  - Dyspnoea [None]
  - Swelling [None]
